FAERS Safety Report 5635532-1 (Version None)
Quarter: 2008Q1

REPORT INFORMATION
  Report Type: 
  Country: None (occurrence: None)
  Receive Date: 20080222
  Receipt Date: 20080212
  Transmission Date: 20080703
  Serious: Yes (Death)
  Sender: FDA-Public Use
  Company Number: US-PFIZER INC-2008014355

PATIENT
  Age: 59 Year
  Sex: Male
  Weight: 88 kg

DRUGS (7)
  1. SUTENT [Suspect]
     Indication: FOLLICULAR THYROID CANCER
     Route: 048
     Dates: start: 20061226, end: 20071029
  2. LIPITOR [Suspect]
  3. SYNTHROID [Concomitant]
  4. NEXIUM [Concomitant]
  5. HALDOL [Concomitant]
  6. ZOFRAN [Concomitant]
  7. PROPRANOLOL [Concomitant]

REACTIONS (1)
  - ACUTE HEPATIC FAILURE [None]
